FAERS Safety Report 10751987 (Version 1)
Quarter: 2015Q1

REPORT INFORMATION
  Report Type: Spontaneous
  Country: RU (occurrence: RU)
  Receive Date: 20150130
  Receipt Date: 20150130
  Transmission Date: 20150721
  Serious: Yes (Death)
  Sender: FDA-Public Use
  Company Number: RU-ASTRAZENECA-2015SE07920

PATIENT
  Age: 2756 Week
  Sex: Male
  Weight: 85 kg

DRUGS (11)
  1. BRILINTA [Suspect]
     Active Substance: TICAGRELOR
     Indication: ACUTE CORONARY SYNDROME
     Route: 048
     Dates: start: 20150103, end: 20150103
  2. CARDIASK [Concomitant]
     Active Substance: ASPIRIN
     Indication: ACUTE CORONARY SYNDROME
     Route: 048
     Dates: start: 20150103, end: 20150103
  3. BRILINTA [Suspect]
     Active Substance: TICAGRELOR
     Indication: ACUTE CORONARY SYNDROME
     Route: 048
     Dates: start: 20150103, end: 20150103
  4. OMEZ [Concomitant]
     Active Substance: OMEPRAZOLE
     Indication: ACUTE CORONARY SYNDROME
     Route: 048
     Dates: start: 20150103, end: 20150103
  5. ATORVASTATIN [Concomitant]
     Active Substance: ATORVASTATIN
     Indication: ACUTE CORONARY SYNDROME
     Route: 048
     Dates: start: 20150103, end: 20150103
  6. DOPMIN (DOPAMINE) [Concomitant]
     Route: 041
     Dates: start: 20150103, end: 20150103
  7. LASIX [Concomitant]
     Active Substance: FUROSEMIDE
     Indication: ACUTE CORONARY SYNDROME
     Route: 040
     Dates: start: 20150103, end: 20150103
  8. SIBAZON (DIAZEPAM) [Concomitant]
     Indication: ACUTE CORONARY SYNDROME
     Route: 040
     Dates: start: 20150103, end: 20150103
  9. MORFINE [Concomitant]
     Active Substance: MORPHINE
     Indication: ACUTE CORONARY SYNDROME
     Dosage: 0.5
     Route: 040
     Dates: start: 20150103, end: 20150103
  10. CLEXANE (ENOXAPARIN SODIUM) [Concomitant]
     Active Substance: ENOXAPARIN SODIUM
     Indication: ACUTE CORONARY SYNDROME
     Route: 058
     Dates: start: 20150103, end: 20150103
  11. CEFTRIAXONE. [Concomitant]
     Active Substance: CEFTRIAXONE
     Indication: ACUTE CORONARY SYNDROME
     Route: 040
     Dates: start: 20150103, end: 20150103

REACTIONS (2)
  - Cardiogenic shock [Fatal]
  - Cardiac failure acute [Fatal]
